FAERS Safety Report 10187388 (Version 2)
Quarter: 2014Q2

REPORT INFORMATION
  Report Type: Spontaneous
  Country: US (occurrence: US)
  Receive Date: 20140522
  Receipt Date: 20140523
  Transmission Date: 20141212
  Serious: Yes (Other)
  Sender: FDA-Public Use
  Company Number: US-DRREDDYS-USA/USA/14/0040477

PATIENT
  Age: 74 Year
  Sex: Male
  Weight: 81.6 kg

DRUGS (2)
  1. ATORVASTATIN TABLETS 10MG, 20 MG + 40 MG (091650) [Suspect]
     Indication: BLOOD CHOLESTEROL INCREASED
     Route: 048
     Dates: start: 20140507
  2. ASPIRIN [Concomitant]
     Indication: PRODUCT USED FOR UNKNOWN INDICATION
     Route: 065

REACTIONS (2)
  - Loss of consciousness [Recovered/Resolved]
  - Product quality issue [Unknown]
